FAERS Safety Report 18604963 (Version 7)
Quarter: 2021Q2

REPORT INFORMATION
  Report Type: Report from Study
  Country: US (occurrence: US)
  Receive Date: 20201211
  Receipt Date: 20210526
  Transmission Date: 20210717
  Serious: Yes (Other)
  Sender: FDA-Public Use
  Company Number: US-INCYTE CORPORATION-2020IN011670

PATIENT

DRUGS (11)
  1. VITAMINS NOS [Concomitant]
     Active Substance: VITAMINS
     Indication: PRODUCT USED FOR UNKNOWN INDICATION
     Route: 065
  2. JAKAFI [Suspect]
     Active Substance: RUXOLITINIB
     Dosage: 10 MILLIGRAM, BID
     Route: 048
     Dates: start: 20201016
  3. CARROT. [Concomitant]
     Active Substance: CARROT
     Indication: PRODUCT USED FOR UNKNOWN INDICATION
     Route: 065
  4. JAKAFI [Suspect]
     Active Substance: RUXOLITINIB
     Dosage: 10 MILLIGRAM, BID
     Route: 048
     Dates: start: 20201015
  5. MEGA 369 [Concomitant]
     Indication: PRODUCT USED FOR UNKNOWN INDICATION
     Route: 065
  6. JAKAFI [Suspect]
     Active Substance: RUXOLITINIB
     Dosage: 5 MILLIGRAM, BID
     Route: 048
     Dates: start: 20201016
  7. COENZYME Q10 [Concomitant]
     Active Substance: DIETARY SUPPLEMENT\UBIDECARENONE
     Indication: PRODUCT USED FOR UNKNOWN INDICATION
     Route: 065
  8. ZINC. [Concomitant]
     Active Substance: ZINC
     Indication: PRODUCT USED FOR UNKNOWN INDICATION
     Route: 065
  9. APPLE CIDER VINEGAR [Concomitant]
     Active Substance: APPLE CIDER VINEGAR
     Indication: PRODUCT USED FOR UNKNOWN INDICATION
     Route: 065
  10. JAKAFI [Suspect]
     Active Substance: RUXOLITINIB
     Indication: MYELOFIBROSIS
     Dosage: 10 MILLIGRAM, BID
     Route: 048
     Dates: start: 20201016
  11. GINGER [ZINGIBER OFFICINALE] [Concomitant]
     Active Substance: GINGER
     Indication: PRODUCT USED FOR UNKNOWN INDICATION
     Route: 065

REACTIONS (20)
  - COVID-19 [Unknown]
  - Heart rate irregular [Unknown]
  - Blood potassium increased [Unknown]
  - Osteoporosis [Unknown]
  - Gastrooesophageal reflux disease [Not Recovered/Not Resolved]
  - Hernia [Unknown]
  - Wrong technique in product usage process [Unknown]
  - Oxygen saturation abnormal [Unknown]
  - Liver disorder [Unknown]
  - Muscle spasms [Unknown]
  - Haemoglobin decreased [Recovering/Resolving]
  - Skin papilloma [Unknown]
  - Platelet count increased [Recovering/Resolving]
  - Gastrointestinal disorder [Unknown]
  - Pain in extremity [Unknown]
  - Cough [Unknown]
  - Product dose omission in error [Unknown]
  - Abdominal hernia [Unknown]
  - Hepatic steatosis [Unknown]
  - Renal disorder [Unknown]

NARRATIVE: CASE EVENT DATE: 202010
